FAERS Safety Report 22275870 (Version 1)
Quarter: 2023Q2

REPORT INFORMATION
  Report Type: Spontaneous
  Country: US (occurrence: US)
  Receive Date: 20230502
  Receipt Date: 20230502
  Transmission Date: 20230721
  Serious: No
  Sender: FDA-Public Use
  Company Number: US-TEVA-2023-US-2879417

PATIENT
  Sex: Female

DRUGS (1)
  1. ESTRADIOL [Suspect]
     Active Substance: ESTRADIOL
     Indication: Hysterectomy
     Dosage: .5 MILLIGRAM DAILY;
     Route: 065
     Dates: start: 2021

REACTIONS (2)
  - Sexual dysfunction [Unknown]
  - Vulvovaginal dryness [Unknown]
